FAERS Safety Report 7328803-4 (Version None)
Quarter: 2011Q1

REPORT INFORMATION
  Report Type: 
  Country: None (occurrence: None)
  Receive Date: 20110303
  Receipt Date: 20110303
  Transmission Date: 20110831
  Serious: Yes (Death, Hospitalization)
  Sender: FDA-Public Use
  Company Number: PHHO2008CZ07549

PATIENT
  Sex: Male
  Weight: 64 kg

DRUGS (7)
  1. GODASAL [Concomitant]
  2. SORTIS [Concomitant]
  3. SANDOSTATIN LAR [Suspect]
     Indication: CARCINOID TUMOUR
     Dosage: 30 MG Q 28 DAYS
  4. HELICID [Concomitant]
  5. CARVEDILOL [Concomitant]
  6. OMEPRAZOLE [Concomitant]
  7. PLACEBO [Suspect]
     Indication: CARCINOID TUMOUR
     Dosage: PLACEBO
     Route: 048
     Dates: start: 20080222, end: 20080529

REACTIONS (22)
  - NEOPLASM PROGRESSION [None]
  - BILE DUCT STENOSIS [None]
  - CHOLANGITIS [None]
  - LEUKOPENIA [None]
  - BILIARY TRACT OPERATION [None]
  - PYREXIA [None]
  - BLOOD BILIRUBIN INCREASED [None]
  - POST PROCEDURAL COMPLICATION [None]
  - GASTRIC HAEMORRHAGE [None]
  - SMALL INTESTINAL HAEMORRHAGE [None]
  - PORTAL HYPERTENSION [None]
  - MALNUTRITION [None]
  - MELAENA [None]
  - BILIARY DRAINAGE [None]
  - ENDOSCOPIC RETROGRADE CHOLANGIOPANCREATOGRAPHY [None]
  - C-REACTIVE PROTEIN INCREASED [None]
  - ANAEMIA [None]
  - JAUNDICE [None]
  - HEPATIC ENZYME INCREASED [None]
  - HYPOTENSION [None]
  - METASTASES TO SMALL INTESTINE [None]
  - PORTAL VEIN THROMBOSIS [None]
